FAERS Safety Report 16325990 (Version 1)
Quarter: 2019Q2

REPORT INFORMATION
  Report Type: Spontaneous
  Country: GB (occurrence: GB)
  Receive Date: 20190517
  Receipt Date: 20190517
  Transmission Date: 20190711
  Serious: Yes (Other)
  Sender: FDA-Public Use
  Company Number: PHHY2019GB110772

PATIENT
  Age: 56 Year
  Sex: Female
  Weight: 58.6 kg

DRUGS (4)
  1. COLPERMIN [Concomitant]
     Active Substance: PEPPERMINT OIL
     Indication: PRODUCT USED FOR UNKNOWN INDICATION
     Route: 065
  2. QUININE BISULFATE [Concomitant]
     Active Substance: QUININE BISULFATE
     Indication: PRODUCT USED FOR UNKNOWN INDICATION
     Route: 065
  3. METRONIDAZOLE. [Suspect]
     Active Substance: METRONIDAZOLE
     Indication: GASTROINTESTINAL INFECTION
     Dosage: 1200 MG, QD
     Route: 048
     Dates: start: 20190402, end: 20190405
  4. PHENOXYMETHYLPENICILLIN [Suspect]
     Active Substance: PENICILLIN V
     Indication: GASTROINTESTINAL INFECTION
     Dosage: 2000 MG, QD
     Route: 048
     Dates: start: 20190402, end: 20190405

REACTIONS (3)
  - Abdominal pain [Recovering/Resolving]
  - Chromaturia [Recovered/Resolved]
  - Nausea [Recovered/Resolved]

NARRATIVE: CASE EVENT DATE: 20190403
